FAERS Safety Report 4968053-X (Version None)
Quarter: 2006Q2

REPORT INFORMATION
  Report Type: 
  Country: None (occurrence: None)
  Receive Date: 20060405
  Receipt Date: 20051227
  Transmission Date: 20061013
  Serious: Yes (Death)
  Sender: FDA-Public Use
  Company Number: 2006-140389-NL

PATIENT
  Age: 92 Year
  Sex: Female

DRUGS (8)
  1. DANAPAROID SODIUM [Suspect]
     Indication: DISSEMINATED INTRAVASCULAR COAGULATION
     Dosage: SEE IMAGE
     Route: 042
     Dates: start: 20050622, end: 20050622
  2. DANAPAROID SODIUM [Suspect]
     Indication: DISSEMINATED INTRAVASCULAR COAGULATION
     Dosage: SEE IMAGE
     Route: 042
     Dates: start: 20050623, end: 20050627
  3. CIPROFLOXACIN HYDROCHLORIDE [Concomitant]
  4. PRODIF [Concomitant]
  5. PLATELETS [Concomitant]
  6. PLASMA PROTEIN FRACTION (HUMAN) [Concomitant]
  7. HUMAN RED BLOOD CELLS [Concomitant]
  8. PLASMA PROTEIN FRACTION (HUMAN) [Concomitant]

REACTIONS (3)
  - CONDITION AGGRAVATED [None]
  - GASTROINTESTINAL HAEMORRHAGE [None]
  - HAEMOGLOBIN DECREASED [None]
